FAERS Safety Report 9798966 (Version 2)
Quarter: 2014Q2

REPORT INFORMATION
  Report Type: Spontaneous
  Country: FR (occurrence: FR)
  Receive Date: 20140106
  Receipt Date: 20140505
  Transmission Date: 20141212
  Serious: Yes (Other)
  Sender: FDA-Public Use
  Company Number: PHHY2014FR000615

PATIENT
  Age: 52 Year
  Sex: Male

DRUGS (4)
  1. TEGRETOL [Suspect]
     Indication: BIPOLAR DISORDER
     Dosage: 600 MG, UNK
     Route: 048
     Dates: start: 20130617, end: 20131204
  2. TEGRETOL [Suspect]
     Dosage: UNK UKN, UNK
     Route: 048
     Dates: start: 20131209, end: 20131216
  3. XEROQUEL [Suspect]
     Indication: BIPOLAR DISORDER
     Dosage: UNK UKN, UNK
     Route: 048
  4. XEROQUEL [Suspect]
     Dosage: 300 MG, UNK
     Route: 048
     Dates: start: 20130327, end: 20131204

REACTIONS (4)
  - Neutropenia [Recovered/Resolved]
  - Hepatic enzyme increased [Recovered/Resolved]
  - Blood bilirubin increased [Recovered/Resolved]
  - Thrombocytopenia [Recovered/Resolved]
